FAERS Safety Report 25797208 (Version 4)
Quarter: 2025Q4

REPORT INFORMATION
  Report Type: Report from Study
  Country: US (occurrence: US)
  Receive Date: 20250912
  Receipt Date: 20251114
  Transmission Date: 20260117
  Serious: Yes (Hospitalization, Other)
  Sender: ABBVIE
  Company Number: US-ABBVIE-6454053

PATIENT
  Age: 73 Year
  Sex: Male

DRUGS (1)
  1. VENCLEXTA [Suspect]
     Active Substance: VENETOCLAX
     Indication: Acute myeloid leukaemia recurrent
     Dosage: TAKING FOUR 100 MG ONCE DAILY
     Route: 048
     Dates: start: 20250826

REACTIONS (16)
  - Gastrointestinal disorder [Unknown]
  - Dry mouth [Unknown]
  - Burning sensation [Unknown]
  - Pain in extremity [Unknown]
  - Bone pain [Unknown]
  - Mobility decreased [Unknown]
  - Epistaxis [Unknown]
  - Diabetes mellitus [Unknown]
  - Peripheral swelling [Unknown]
  - Platelet count decreased [Unknown]
  - Erythrophagocytosis [Unknown]
  - Gait disturbance [Unknown]
  - Fall [Unknown]
  - Musculoskeletal stiffness [Unknown]
  - Pain [Unknown]
  - Balance disorder [Unknown]

NARRATIVE: CASE EVENT DATE: 20250101
